FAERS Safety Report 8161069-4 (Version None)
Quarter: 2012Q1

REPORT INFORMATION
  Report Type: 
  Country: None (occurrence: None)
  Receive Date: 20120224
  Receipt Date: 20120211
  Transmission Date: 20120608
  Serious: Yes (Hospitalization, Other)
  Sender: FDA-Public Use
  Company Number: FR-PAR PHARMACEUTICAL, INC-2012SCPR004216

PATIENT

DRUGS (9)
  1. CYCLOPHOSPHAMIDE [Concomitant]
     Indication: ACUTE LYMPHOCYTIC LEUKAEMIA
     Dosage: 300 MG/M2, UNK
     Route: 065
  2. IMATINIB MESYLATE [Concomitant]
     Dosage: 800 MG, / DAY, FROM DAYS 1 TO 15
     Route: 048
  3. VINCRISTINE [Concomitant]
     Indication: ACUTE LYMPHOCYTIC LEUKAEMIA
     Dosage: 2 MG/ DAY ON DAYS 4 AND 11
     Route: 065
  4. DEXAMETHASONE [Suspect]
     Indication: ACUTE LYMPHOCYTIC LEUKAEMIA
     Dosage: 40 MG, / DAY, FROM DAYS 11 TO 14
     Route: 065
  5. IMATINIB MESYLATE [Concomitant]
     Indication: ACUTE LYMPHOCYTIC LEUKAEMIA
     Dosage: 800MG, /DAY FROM DAYS 1 TO 15
     Route: 048
  6. HYDROCORTISONE [Suspect]
     Indication: PROPHYLAXIS
     Dosage: ON DAYS 1, 8 AND 15
     Route: 065
  7. METHOTREXATE [Concomitant]
     Indication: PROPHYLAXIS
     Dosage: ON DAYS 1, 8 AND 15
     Route: 037
  8. CYTARABINE [Concomitant]
     Indication: PROPHYLAXIS
     Dosage: ON DAYS 1, 8 AND 15
     Route: 037
  9. DOXORUBICIN HCL [Concomitant]
     Indication: ACUTE LYMPHOCYTIC LEUKAEMIA
     Dosage: 50 MG/M2, ON DAY 4
     Route: 065

REACTIONS (1)
  - FUSARIUM INFECTION [None]
